FAERS Safety Report 11316666 (Version 2)
Quarter: 2015Q3

REPORT INFORMATION
  Report Type: Report from Study
  Country: PH (occurrence: PH)
  Receive Date: 20150728
  Receipt Date: 20150806
  Transmission Date: 20151125
  Serious: Yes (Life-Threatening, Hospitalization, Other)
  Sender: FDA-Public Use
  Company Number: PHHY2015PH082509

PATIENT
  Age: 12 Year
  Sex: Male

DRUGS (3)
  1. GLIVEC [Suspect]
     Active Substance: IMATINIB MESYLATE
     Indication: CHRONIC MYELOID LEUKAEMIA
     Dosage: 400 MG, QD
     Route: 065
     Dates: start: 20150303, end: 201506
  2. GLIVEC [Suspect]
     Active Substance: IMATINIB MESYLATE
     Dosage: 5 DF, QD
     Route: 065
     Dates: end: 201506
  3. COTRIMOXAZOLE [Concomitant]
     Active Substance: SULFAMETHOXAZOLE\TRIMETHOPRIM
     Indication: ANTIFUNGAL PROPHYLAXIS
     Route: 065

REACTIONS (9)
  - Thrombocytopenia [Unknown]
  - Chronic myeloid leukaemia transformation [Not Recovered/Not Resolved]
  - Acute lymphocytic leukaemia [Not Recovered/Not Resolved]
  - Coma [Unknown]
  - Contusion [Unknown]
  - Acute myeloid leukaemia [Not Recovered/Not Resolved]
  - Blood disorder [Unknown]
  - Blast crisis in myelogenous leukaemia [Not Recovered/Not Resolved]
  - Asthenia [Unknown]

NARRATIVE: CASE EVENT DATE: 201506
